FAERS Safety Report 24670088 (Version 1)
Quarter: 2024Q4

REPORT INFORMATION
  Report Type: Spontaneous
  Country: CN (occurrence: CN)
  Receive Date: 20241127
  Receipt Date: 20241127
  Transmission Date: 20250115
  Serious: Yes (Life-Threatening, Other)
  Sender: BRISTOL-MYERS SQUIBB COMPANY
  Company Number: CN-MLMSERVICE-20241113-PI255602-00255-1

PATIENT
  Age: 67 Year
  Sex: Male

DRUGS (5)
  1. PACLITAXEL [Suspect]
     Active Substance: PACLITAXEL
     Indication: Oesophageal carcinoma
     Dosage: ON DAY 1/21-DAY CYCLE FOR 1 CYCLE
     Route: 042
     Dates: start: 20221110, end: 20221110
  2. PACLITAXEL [Suspect]
     Active Substance: PACLITAXEL
     Dosage: ON DAY 5//21-DAY CYCLE FOR 1 CYCLE
     Route: 042
     Dates: start: 20221114, end: 20221114
  3. SINTILIMAB [Suspect]
     Active Substance: SINTILIMAB
     Indication: Oesophageal carcinoma
     Dosage: SINTILIMAB INJECTION BY IV INFUSION ON THE DAY BEFORE CHEMOTHERAPY/21-DAY CYCLE FOR 4 CYCLES
     Route: 042
     Dates: start: 20221109, end: 2023
  4. NEDAPLATIN [Suspect]
     Active Substance: NEDAPLATIN
     Indication: Oesophageal carcinoma
     Dosage: ON DAY 1 (21-DAY CYCLE FOR 4 CYCLES)
     Route: 042
     Dates: start: 20221110, end: 2023
  5. NEDAPLATIN [Suspect]
     Active Substance: NEDAPLATIN
     Dosage: ON DAY 2  (21 DAYS AS 1 CYCLE FOR 4 CYCLES)
     Route: 042
     Dates: start: 20221111, end: 2023

REACTIONS (1)
  - Myelosuppression [Recovered/Resolved]

NARRATIVE: CASE EVENT DATE: 20220101
